FAERS Safety Report 16894207 (Version 1)
Quarter: 2019Q4

REPORT INFORMATION
  Report Type: Spontaneous
  Country: US (occurrence: US)
  Receive Date: 20191008
  Receipt Date: 20191008
  Transmission Date: 20200122
  Serious: No
  Sender: FDA-Public Use
  Company Number: US-INDIVIOR US-INDV-113481-2018

PATIENT
  Age: 46 Year
  Sex: Male

DRUGS (2)
  1. SUBOXONE [Suspect]
     Active Substance: BUPRENORPHINE HYDROCHLORIDE\NALOXONE HYDROCHLORIDE
     Indication: DRUG DEPENDENCE
     Dosage: 8 MG, BID
     Route: 060
  2. SUBOXONE [Suspect]
     Active Substance: BUPRENORPHINE HYDROCHLORIDE\NALOXONE HYDROCHLORIDE
     Dosage: UNK, DOSES SPLIT IN HALF BID
     Route: 060
     Dates: start: 20180816

REACTIONS (8)
  - Blood testosterone decreased [Unknown]
  - Oedema peripheral [Recovered/Resolved]
  - Animal bite [Recovered/Resolved]
  - Tooth infection [Unknown]
  - Pain [Recovered/Resolved]
  - Wrong technique in product usage process [Unknown]
  - Fluid retention [Recovered/Resolved]
  - Inappropriate schedule of product administration [Unknown]

NARRATIVE: CASE EVENT DATE: 2018
